FAERS Safety Report 21545491 (Version 1)
Quarter: 2022Q4

REPORT INFORMATION
  Report Type: Spontaneous
  Country: US (occurrence: US)
  Receive Date: 20221103
  Receipt Date: 20221103
  Transmission Date: 20230112
  Serious: Yes (Other)
  Sender: FDA-Public Use
  Company Number: US-ASTELLAS-2022US039076

PATIENT
  Age: 60 Year
  Sex: Male

DRUGS (7)
  1. XOSPATA [Suspect]
     Active Substance: GILTERITINIB
     Indication: Acute myeloid leukaemia
     Route: 065
     Dates: start: 201608
  2. XOSPATA [Suspect]
     Active Substance: GILTERITINIB
     Route: 065
     Dates: start: 201611
  3. DAUNORUBICIN [Concomitant]
     Active Substance: DAUNORUBICIN
     Indication: Acute myeloid leukaemia
     Dosage: 60 MG/M2, ONCE DAILY (DAYS 1-3)
     Route: 065
     Dates: start: 201601
  4. CYTARABINE [Concomitant]
     Active Substance: CYTARABINE
     Indication: Acute myeloid leukaemia
     Dosage: 100 MG/M2, ONCE DAILY (DAYS 1-7)
     Route: 065
     Dates: start: 201601
  5. SORAFENIB [Concomitant]
     Active Substance: SORAFENIB
     Indication: Acute myeloid leukaemia
     Dosage: UNK UNK, OTHER (SORAFENIB;AZACITIDINE X 2 CYCLES)
     Route: 065
     Dates: start: 201604
  6. AZACITIDINE [Concomitant]
     Active Substance: AZACITIDINE
     Indication: Acute myeloid leukaemia
     Dosage: UNK UNK, OTHER (SORAFENIB;AZACITIDINE X 2 CYCLES)
     Route: 065
     Dates: start: 201604
  7. CYCLOPHOSPHAMIDE [Concomitant]
     Active Substance: CYCLOPHOSPHAMIDE
     Indication: Cytoreductive surgery
     Dosage: UNK UNK, UNKNOWN FREQ.
     Route: 065
     Dates: start: 201608

REACTIONS (3)
  - Graft versus host disease in skin [Recovered/Resolved]
  - Graft versus host disease in liver [Unknown]
  - Rash [Recovered/Resolved]

NARRATIVE: CASE EVENT DATE: 20161101
